FAERS Safety Report 12285325 (Version 1)
Quarter: 2016Q2

REPORT INFORMATION
  Report Type: Report from Study
  Country: AR (occurrence: AR)
  Receive Date: 20160420
  Receipt Date: 20160420
  Transmission Date: 20160815
  Serious: Yes (Death, Hospitalization)
  Sender: FDA-Public Use
  Company Number: PHHY2015AR121931

PATIENT
  Sex: Male

DRUGS (3)
  1. MORPHINE [Concomitant]
     Active Substance: MORPHINE
     Indication: PRODUCT USED FOR UNKNOWN INDICATION
     Route: 065
  2. JAKAFI [Suspect]
     Active Substance: RUXOLITINIB
     Indication: MYELOFIBROSIS
     Dosage: UNK
     Route: 065
     Dates: start: 2014
  3. EXJADE [Suspect]
     Active Substance: DEFERASIROX
     Indication: MYELOFIBROSIS
     Dosage: UNK
     Route: 065
     Dates: start: 2013

REACTIONS (5)
  - Abdominal distension [Not Recovered/Not Resolved]
  - Listless [Unknown]
  - Weight decreased [Not Recovered/Not Resolved]
  - General physical health deterioration [Fatal]
  - Hypophagia [Not Recovered/Not Resolved]
